FAERS Safety Report 8564685 (Version 2)
Quarter: 2013Q2

REPORT INFORMATION
  Report Type: Report from Study
  Country: DE (occurrence: DE)
  Receive Date: 20120516
  Receipt Date: 20130422
  Transmission Date: 20140414
  Serious: Yes (Hospitalization)
  Sender: FDA-Public Use
  Company Number: DE-JNJFOC-20120507569

PATIENT
  Age: 68 Year
  Sex: Male

DRUGS (5)
  1. REMICADE [Suspect]
     Indication: RHEUMATOID ARTHRITIS
     Route: 042
  2. PREDNISOLONE [Concomitant]
  3. OMNIC [Concomitant]
  4. ISCOVER [Concomitant]
  5. THIAMAZOLE [Concomitant]

REACTIONS (1)
  - Prostate cancer [Unknown]
